FAERS Safety Report 7494885-2 (Version None)
Quarter: 2011Q2

REPORT INFORMATION
  Report Type: 
  Country: None (occurrence: None)
  Receive Date: 20110520
  Receipt Date: 20110511
  Transmission Date: 20111010
  Serious: Yes (Hospitalization)
  Sender: FDA-Public Use
  Company Number: FR-B.I. PHARMACEUTICALS,INC./RIDGEFIELD-2011-FF-00485FF

PATIENT
  Sex: Female

DRUGS (4)
  1. KETOPROFEN [Suspect]
     Route: 048
  2. TRAMADOL HCL [Suspect]
     Route: 048
  3. PRADAXA [Suspect]
     Indication: HIP ARTHROPLASTY
     Route: 048
  4. PRADAXA [Suspect]
     Indication: THROMBOSIS PROPHYLAXIS

REACTIONS (3)
  - ASPARTATE AMINOTRANSFERASE INCREASED [None]
  - GAMMA-GLUTAMYLTRANSFERASE INCREASED [None]
  - ALANINE AMINOTRANSFERASE INCREASED [None]
